FAERS Safety Report 21973519 (Version 1)
Quarter: 2023Q1

REPORT INFORMATION
  Report Type: Spontaneous
  Country: US (occurrence: US)
  Receive Date: 20230209
  Receipt Date: 20230209
  Transmission Date: 20230418
  Serious: No
  Sender: FDA-Public Use
  Company Number: US-PFIZER INC-202300058752

PATIENT
  Age: 63 Year
  Sex: Female
  Weight: 66.68 kg

DRUGS (11)
  1. IBRANCE [Suspect]
     Active Substance: PALBOCICLIB
     Indication: Breast cancer female
     Dosage: UNK
     Dates: start: 201802
  2. IBRANCE [Suspect]
     Active Substance: PALBOCICLIB
     Dosage: UNK
     Dates: end: 202212
  3. IBRANCE [Suspect]
     Active Substance: PALBOCICLIB
     Dosage: 100 MG, CYCLIC (ONCE DAILY 21 DAY CYCLE, 7 DAYS OFF)
     Dates: end: 20230112
  4. ANASTROZOLE [Concomitant]
     Active Substance: ANASTROZOLE
     Indication: Breast cancer female
     Dosage: 1 MG, DAILY
     Dates: start: 201802, end: 20230112
  5. VITAMIN D NOS [Concomitant]
     Active Substance: VITAMIN D NOS
     Dosage: 600
     Dates: end: 20230112
  6. CALTRATE [Concomitant]
     Active Substance: CALCIUM CARBONATE
     Dosage: UNK, 2-1 IN MORNING,1 IN EVENING THINK 600 PER DOSE
  7. BIOTIN [Concomitant]
     Active Substance: BIOTIN
     Indication: Nail disorder
     Dosage: 10000 MG, 1X/DAY
     Dates: end: 20230112
  8. BIOTIN [Concomitant]
     Active Substance: BIOTIN
     Dosage: 10000 MG, 1X/DAY
  9. HYDROCHLOROTHIAZIDE [Concomitant]
     Active Substance: HYDROCHLOROTHIAZIDE
     Indication: Hypertension
     Dosage: 25 MG
  10. HYDROCHLOROTHIAZIDE [Concomitant]
     Active Substance: HYDROCHLOROTHIAZIDE
     Indication: Fluid retention
  11. SYNTHROID [Concomitant]
     Active Substance: LEVOTHYROXINE SODIUM
     Indication: Thyroid disorder
     Dosage: UNK, 1X/DAY (1 A DAY IN THE EVENING)

REACTIONS (5)
  - Bone marrow myelogram abnormal [Unknown]
  - Neutrophil count abnormal [Unknown]
  - Full blood count abnormal [Unknown]
  - White blood cell count decreased [Recovering/Resolving]
  - Neoplasm progression [Unknown]

NARRATIVE: CASE EVENT DATE: 20221201
